FAERS Safety Report 4365575-X (Version None)
Quarter: 2004Q2

REPORT INFORMATION
  Report Type: 
  Country: None (occurrence: None)
  Receive Date: 20040526
  Receipt Date: 20040415
  Transmission Date: 20050107
  Serious: Yes (Hospitalization)
  Sender: FDA-Public Use
  Company Number: SK-ROCHE-364592

PATIENT
  Age: 57 Year
  Sex: Female
  Weight: 55.6 kg

DRUGS (9)
  1. INTERFERON ALFA-2A [Suspect]
     Dosage: 6 MU/M^2 ONCE A WEEK ON WEEKS 1 + 4. ON WEEKS 2 + 3, 6 MU/M^2 ADMINISTERED 3 TIMES A WEEK.
     Route: 058
     Dates: start: 20040315
  2. INTERFERON ALFA-2A [Suspect]
     Dosage: CUMULATIVE DOSE GIVEN WAS 240 MU.
     Route: 058
     Dates: end: 20040507
  3. INTERLEUKIN-2 [Suspect]
     Dosage: 10 MU/M^2 ON DAY 3 FOR 3 DAYS ON WEEKS 1 + 4. ON WEEKS 2 + 3, 5 MU/M^2 FOR 3 DAYS.  CUMULAT+
     Route: 058
     Dates: start: 20040317
  4. INTERLEUKIN-2 [Suspect]
     Dosage: REDUCED TO 50%.
     Route: 058
  5. PROLEUKIN [Suspect]
     Route: 058
  6. PROLEUKIN [Suspect]
     Dosage: CUMULATIVE DOSE GIVEN WAS 226.8 MU.
     Route: 058
     Dates: end: 20040409
  7. FLUOROURACIL [Suspect]
     Dosage: CUMULATIVE DOSE WAS 4600 MG.
     Route: 042
     Dates: start: 20040412, end: 20040503
  8. BROMAZEPAM [Concomitant]
     Dates: start: 20040125
  9. VASOCARDIN [Concomitant]
     Dates: start: 20040211, end: 20040405

REACTIONS (7)
  - CHILLS [None]
  - DIARRHOEA [None]
  - DISEASE PROGRESSION [None]
  - FEBRILE NEUTROPENIA [None]
  - HYPOTENSION [None]
  - PYREXIA [None]
  - SUBILEUS [None]
